FAERS Safety Report 6494130-0 (Version None)
Quarter: 2009Q4

REPORT INFORMATION
  Report Type: 
  Country: None (occurrence: None)
  Receive Date: 20091214
  Receipt Date: 20090107
  Transmission Date: 20100525
  Serious: No
  Sender: FDA-Public Use
  Company Number: US-BRISTOL-MYERS SQUIBB COMPANY-14463350

PATIENT
  Age: 57 Year
  Sex: Female

DRUGS (10)
  1. ABILIFY [Suspect]
     Indication: BIPOLAR DISORDER
     Dosage: INITIALY 2 MG
     Dates: start: 20080401, end: 20080901
  2. ALPRAZOLAM [Concomitant]
  3. TRIAMTERENE [Concomitant]
  4. LEVOTHYROXINE SODIUM [Concomitant]
  5. LISINOPRIL [Concomitant]
  6. ZOCOR [Concomitant]
  7. NIASPAN [Concomitant]
  8. CYMBALTA [Concomitant]
  9. ZOLPIDEM [Concomitant]
  10. NORVASC [Concomitant]

REACTIONS (4)
  - ANXIETY [None]
  - DYSKINESIA [None]
  - EYELID FUNCTION DISORDER [None]
  - MUSCLE TWITCHING [None]
